FAERS Safety Report 9513047 (Version 4)
Quarter: 2014Q1

REPORT INFORMATION
  Report Type: Spontaneous
  Country: US (occurrence: US)
  Receive Date: 20130910
  Receipt Date: 20140129
  Transmission Date: 20141002
  Serious: Yes (Other)
  Sender: FDA-Public Use
  Company Number: US-PFIZER INC-2013256069

PATIENT
  Age: 60 Year
  Sex: Male

DRUGS (4)
  1. SUTENT [Suspect]
     Indication: RENAL CANCER METASTATIC
     Dosage: 50 MG, DAILY, 28 DAYS ON, 14 DAYS OFF
     Route: 048
     Dates: start: 20130723
  2. CARVEDILOL [Concomitant]
     Dosage: UNK
  3. LISINOPRIL [Concomitant]
     Dosage: UNK
  4. LEVOTHYROXINE [Concomitant]
     Dosage: UNK

REACTIONS (3)
  - Alopecia [Unknown]
  - Nausea [Unknown]
  - Weight decreased [Unknown]
